FAERS Safety Report 14726993 (Version 3)
Quarter: 2021Q4

REPORT INFORMATION
  Report Type: Report from Study
  Country: FR (occurrence: FR)
  Receive Date: 20180406
  Receipt Date: 20211020
  Transmission Date: 20220304
  Serious: Yes (Hospitalization)
  Sender: FDA-Public Use
  Company Number: FR-SHIRE-FR201731965

PATIENT
  Age: 2 Year
  Sex: Male

DRUGS (14)
  1. METHOTREXATE [Suspect]
     Active Substance: METHOTREXATE
     Indication: Product used for unknown indication
     Dosage: 10 MILLIGRAM
     Route: 037
     Dates: start: 20171114, end: 20171114
  2. METHOTREXATE [Suspect]
     Active Substance: METHOTREXATE
     Indication: Acute lymphocytic leukaemia
     Dosage: 10 MILLIGRAM
     Route: 037
     Dates: start: 20171130, end: 20171228
  3. PEGASPARGASE [Suspect]
     Active Substance: PEGASPARGASE
     Indication: Acute lymphocytic leukaemia
     Dosage: 1600 INTERNATIONAL UNIT, QD
     Route: 042
     Dates: start: 20171120, end: 20171120
  4. PEGASPARGASE [Suspect]
     Active Substance: PEGASPARGASE
     Dosage: 1600 INTERNATIONAL UNIT, QD (1X/DAY)
     Route: 042
     Dates: start: 20171003, end: 20171003
  5. VINCRISTINE [Suspect]
     Active Substance: VINCRISTINE
     Indication: Acute lymphocytic leukaemia
     Dosage: 0.93 MILLIGRAM
     Route: 042
     Dates: start: 20171113, end: 20171120
  6. VINCRISTINE [Suspect]
     Active Substance: VINCRISTINE
     Indication: Product used for unknown indication
     Dosage: 0.9 MILLIGRAM
     Route: 042
  7. MERCAPTOPURINE [Suspect]
     Active Substance: MERCAPTOPURINE
     Indication: Acute lymphocytic leukaemia
     Dosage: 30 MILLIGRAM
     Route: 048
     Dates: start: 20171113, end: 20171120
  8. MERCAPTOPURINE [Suspect]
     Active Substance: MERCAPTOPURINE
     Dosage: 40 MILLIGRAM
     Dates: start: 20171127, end: 20171226
  9. DEXAMETHASONE [Suspect]
     Active Substance: DEXAMETHASONE
     Indication: Acute lymphocytic leukaemia
     Dosage: 3.5 MILLIGRAM
     Route: 048
     Dates: start: 20171113, end: 20171120
  10. METHOTREXATE [Suspect]
     Active Substance: METHOTREXATE
     Indication: Acute lymphocytic leukaemia
     Dosage: 15 MILLIGRAM
     Route: 048
     Dates: start: 20171120, end: 20171120
  11. CYCLOPHOSPHAMIDE [Suspect]
     Active Substance: CYCLOPHOSPHAMIDE
     Indication: Acute lymphocytic leukaemia
     Dosage: 600 MILLIGRAM
     Route: 042
     Dates: start: 20171127, end: 20171127
  12. CYTARABINE [Suspect]
     Active Substance: CYTARABINE
     Indication: Acute lymphocytic leukaemia
     Dosage: 25 MILLIGRAM
     Route: 037
     Dates: start: 20171130, end: 20171228
  13. CYTARABINE [Suspect]
     Active Substance: CYTARABINE
     Dosage: 46 MILLIGRAM
     Route: 042
  14. HYDROCORTISONE [Suspect]
     Active Substance: HYDROCORTISONE
     Indication: Acute lymphocytic leukaemia
     Dosage: 12.5 MILLIGRAM
     Route: 037
     Dates: start: 20171130, end: 20171228

REACTIONS (1)
  - Drug hypersensitivity [Recovered/Resolved]

NARRATIVE: CASE EVENT DATE: 20171120
